FAERS Safety Report 9233663 (Version 1)
Quarter: 2013Q2

REPORT INFORMATION
  Report Type: Spontaneous
  Country: US (occurrence: US)
  Receive Date: 20130416
  Receipt Date: 20130416
  Transmission Date: 20140414
  Serious: No
  Sender: FDA-Public Use
  Company Number: US-BANPHARM-20130646

PATIENT
  Age: 20 Year
  Sex: Male
  Weight: 58.97 kg

DRUGS (1)
  1. ALEVE LIQUID GELS 220MG [Suspect]
     Dosage: 1 DF, ONCE,
     Route: 048
     Dates: start: 20120303, end: 20120303

REACTIONS (4)
  - Pruritus [Recovered/Resolved]
  - Urticaria [Not Recovered/Not Resolved]
  - Erythema [Recovered/Resolved]
  - Skin irritation [Recovered/Resolved]
